FAERS Safety Report 8446208 (Version 2)
Quarter: 2012Q4

REPORT INFORMATION
  Report Type: 
  Country: FR (occurrence: FR)
  Receive Date: 20120307
  Receipt Date: 20121226
  Transmission Date: 20130627
  Serious: Yes (Hospitalization)
  Sender: FDA-Public Use
  Company Number: FR-PFIZER INC-2012058338

PATIENT
  Age: 91 Year
  Sex: Female

DRUGS (6)
  1. EUPANTOL [Suspect]
     Dosage: 20 mg, daily
     Route: 048
     Dates: start: 20111222, end: 2012
  2. COVERSYL [Suspect]
     Dosage: 4 mg, daily
     Route: 048
     Dates: start: 2008
  3. EBIXA [Suspect]
     Dosage: 20 mg daily
     Route: 048
     Dates: start: 2009
  4. CORVASAL [Suspect]
     Dosage: 8 mg daily
     Route: 048
     Dates: start: 2008
  5. BALLOTA NIGRA SUBSP. VELUTINA [Suspect]
     Dosage: 1 DF daily
     Route: 048
     Dates: start: 20111222, end: 20120103
  6. TARDYFERON [Concomitant]

REACTIONS (1)
  - Pemphigoid [Recovered/Resolved]
